FAERS Safety Report 18242333 (Version 1)
Quarter: 2020Q3

REPORT INFORMATION
  Report Type: Spontaneous
  Country: US (occurrence: US)
  Receive Date: 20200908
  Receipt Date: 20200908
  Transmission Date: 20201103
  Serious: Yes (Hospitalization, Other)
  Sender: FDA-Public Use
  Company Number: US-PFIZER INC-2020345208

PATIENT
  Age: 66 Year
  Sex: Female
  Weight: 136.08 kg

DRUGS (3)
  1. XELJANZ [Suspect]
     Active Substance: TOFACITINIB CITRATE
     Indication: RHEUMATOID ARTHRITIS
     Dosage: 5 MG, 1X/DAY
     Dates: start: 202005
  2. PREDNISONE. [Suspect]
     Active Substance: PREDNISONE
     Dosage: 5 MG, 2X/DAY
  3. HUMIRA [Suspect]
     Active Substance: ADALIMUMAB
     Dosage: UNK

REACTIONS (6)
  - Blood pressure decreased [Unknown]
  - Loss of consciousness [Unknown]
  - Asthenia [Unknown]
  - Cardiac disorder [Unknown]
  - Cellulitis [Unknown]
  - Dizziness [Unknown]
